FAERS Safety Report 6850413-3 (Version None)
Quarter: 2010Q3

REPORT INFORMATION
  Report Type: 
  Country: None (occurrence: None)
  Receive Date: 20100716
  Receipt Date: 20071210
  Transmission Date: 20110219
  Serious: No
  Sender: FDA-Public Use
  Company Number: US-PFIZER INC-2007086371

PATIENT
  Sex: Female
  Weight: 90.909 kg

DRUGS (10)
  1. CHANTIX [Suspect]
     Indication: SMOKING CESSATION THERAPY
     Route: 048
     Dates: start: 20070916, end: 20071001
  2. WELLBUTRIN [Concomitant]
  3. CYMBALTA [Concomitant]
  4. NEURONTIN [Concomitant]
  5. PRILOSEC [Concomitant]
  6. REGLAN [Concomitant]
  7. PERPHENAZINE [Concomitant]
  8. CYCLOBENZAPRINE HYDROCHLORIDE [Concomitant]
  9. AMITRIPTYLINE HYDROCHLORIDE [Concomitant]
  10. XANAX [Concomitant]

REACTIONS (1)
  - DEPRESSION [None]
